FAERS Safety Report 10690849 (Version 3)
Quarter: 2015Q1

REPORT INFORMATION
  Report Type: Spontaneous
  Country: US (occurrence: None)
  Receive Date: 20150102
  Receipt Date: 20150317
  Transmission Date: 20150720
  Serious: Yes (Other)
  Sender: FDA-Public Use
  Company Number: 2014MAR00023

PATIENT
  Sex: Female

DRUGS (4)
  1. PAXIL [Suspect]
     Active Substance: PAROXETINE HYDROCHLORIDE
  2. MIDRIN [Suspect]
     Active Substance: ACETAMINOPHEN\DICHLORALPHENAZONE\ISOMETHEPTENE
  3. PEPCID [Suspect]
     Active Substance: FAMOTIDINE
     Dates: start: 1997, end: 1997
  4. METAMUCIL [Suspect]
     Active Substance: PLANTAGO SEED

REACTIONS (5)
  - Multiple allergies [None]
  - Biliary colic [None]
  - Meningitis aseptic [None]
  - Ocular hyperaemia [None]
  - Angioedema [None]

NARRATIVE: CASE EVENT DATE: 19990408
